FAERS Safety Report 14846185 (Version 2)
Quarter: 2018Q4

REPORT INFORMATION
  Report Type: Spontaneous
  Country: FR (occurrence: FR)
  Receive Date: 20180504
  Receipt Date: 20181024
  Transmission Date: 20190204
  Serious: Yes (Other)
  Sender: FDA-Public Use
  Company Number: FR-MERCK KGAA-2047192

PATIENT
  Age: 38 Year
  Sex: Female

DRUGS (1)
  1. EUTHYROX [Suspect]
     Active Substance: LEVOTHYROXINE SODIUM
     Indication: PRODUCT USED FOR UNKNOWN INDICATION

REACTIONS (20)
  - Fatigue [None]
  - Eating disorder [None]
  - Social avoidant behaviour [None]
  - Blood thyroid stimulating hormone decreased [Recovered/Resolved]
  - Panic attack [None]
  - Malaise [None]
  - Apathy [None]
  - Loss of personal independence in daily activities [None]
  - Alopecia [None]
  - Impaired driving ability [None]
  - Impaired work ability [None]
  - Thyroxine free increased [Recovered/Resolved]
  - Anxiety [None]
  - Weight decreased [None]
  - Anger [None]
  - Headache [None]
  - Musculoskeletal stiffness [None]
  - Palpitations [None]
  - Negative thoughts [None]
  - Fear [None]

NARRATIVE: CASE EVENT DATE: 20171008
